FAERS Safety Report 6595923-1 (Version None)
Quarter: 2010Q1

REPORT INFORMATION
  Report Type: 
  Country: None (occurrence: None)
  Receive Date: 20100216
  Receipt Date: 20100202
  Transmission Date: 20100710
  Serious: Yes (Hospitalization)
  Sender: FDA-Public Use
  Company Number: 2010PL000012

PATIENT
  Age: 69 Year
  Sex: Male

DRUGS (6)
  1. PROLEUKIN [Suspect]
     Indication: COLON CANCER
     Dosage: 22 MIU;QW;SC
     Route: 058
     Dates: start: 20090922, end: 20090922
  2. TARCEVA [Concomitant]
  3. XELODA [Concomitant]
  4. ZOFRAN [Concomitant]
  5. 5-FU [Concomitant]
  6. OXALIPLATIN [Concomitant]

REACTIONS (4)
  - ABDOMINAL DISTENSION [None]
  - ABDOMINAL PAIN [None]
  - INJECTION SITE ERYTHEMA [None]
  - INJECTION SITE PAIN [None]
